FAERS Safety Report 9816080 (Version 3)
Quarter: 2017Q3

REPORT INFORMATION
  Report Type: Report from Study
  Country: AU (occurrence: AU)
  Receive Date: 20140114
  Receipt Date: 20170830
  Transmission Date: 20171128
  Serious: Yes (Death, Other)
  Sender: FDA-Public Use
  Company Number: AU-CELGENEUS-008-21880-13042396

PATIENT

DRUGS (3)
  1. REVLIMID [Suspect]
     Active Substance: LENALIDOMIDE
     Dosage: 15 MILLIGRAM
     Route: 048
  2. PREDNISOLONE. [Concomitant]
     Active Substance: PREDNISOLONE
     Indication: PLASMA CELL MYELOMA
     Dosage: 50 MILLIGRAM
     Route: 065
  3. REVLIMID [Suspect]
     Active Substance: LENALIDOMIDE
     Indication: PLASMA CELL MYELOMA
     Dosage: 10 MILLIGRAM
     Route: 048

REACTIONS (22)
  - Plasma cell myeloma recurrent [Fatal]
  - Deep vein thrombosis [Unknown]
  - Fatigue [Unknown]
  - Mouth ulceration [Unknown]
  - Neuropathy peripheral [Unknown]
  - Death [Fatal]
  - Lower respiratory tract infection [Unknown]
  - Embolism venous [Unknown]
  - Muscle spasms [Unknown]
  - Bone marrow failure [Unknown]
  - Thrombocytopenia [Unknown]
  - Anaemia [Unknown]
  - Varicella zoster virus infection [Unknown]
  - Plasma cell myeloma [Fatal]
  - Hyperglycaemia [Unknown]
  - Insomnia [Unknown]
  - Oedema peripheral [Unknown]
  - Pulmonary embolism [Unknown]
  - Neutropenia [Unknown]
  - Upper respiratory tract infection [Unknown]
  - Urinary tract infection [Unknown]
  - Diarrhoea [Unknown]
